FAERS Safety Report 7303339-5 (Version None)
Quarter: 2011Q1

REPORT INFORMATION
  Report Type: 
  Country: None (occurrence: None)
  Receive Date: 20110221
  Receipt Date: 20110215
  Transmission Date: 20110831
  Serious: Yes (Hospitalization, Other)
  Sender: FDA-Public Use
  Company Number: BR-ELI_LILLY_AND_COMPANY-BR201102004234

PATIENT
  Age: 34 Year
  Sex: Female

DRUGS (2)
  1. ZYPREXA [Suspect]
     Indication: PSYCHOTIC DISORDER
     Dosage: UNK MG, UNKNOWN
     Route: 065
  2. BENZODIAZEPINE DERIVATIVES [Concomitant]
     Indication: PSYCHOTIC DISORDER
     Dosage: UNK, UNKNOWN
     Route: 065
     Dates: end: 20110214

REACTIONS (3)
  - ALTERED STATE OF CONSCIOUSNESS [None]
  - SEDATION [None]
  - INTENTIONAL DRUG MISUSE [None]
